FAERS Safety Report 7328169-X (Version None)
Quarter: 2011Q1

REPORT INFORMATION
  Report Type: 
  Country: None (occurrence: None)
  Receive Date: 20110303
  Receipt Date: 20110223
  Transmission Date: 20110831
  Serious: Yes (Hospitalization, Other)
  Sender: FDA-Public Use
  Company Number: ES-ELI_LILLY_AND_COMPANY-ES201102006591

PATIENT
  Sex: Male

DRUGS (5)
  1. FENTANILO [Concomitant]
     Indication: PAIN
     Dosage: 50 MG, UNK
     Route: 062
  2. NOLOTIL [Concomitant]
     Indication: PAIN
     Route: 048
  3. LORAZEPAM [Concomitant]
     Dosage: UNK, DAILY (1/D)
     Route: 048
  4. FORTEO [Suspect]
     Indication: OSTEOPOROSIS
     Dosage: 20 UG, DAILY (1/D)
     Route: 058
     Dates: start: 20110218
  5. PARACETAMOL [Concomitant]
     Indication: PAIN
     Dosage: 4 G, DAILY (1/D)
     Route: 048

REACTIONS (1)
  - HAEMATEMESIS [None]
